APPROVED DRUG PRODUCT: NASACORT
Active Ingredient: TRIAMCINOLONE ACETONIDE
Strength: 0.055MG/INH
Dosage Form/Route: AEROSOL, METERED;NASAL
Application: N019798 | Product #001
Applicant: CHATTEM INC DBA SANOFI CONSUMER HEALTHCARE
Approved: Jul 11, 1991 | RLD: No | RS: No | Type: DISCN